FAERS Safety Report 20082076 (Version 8)
Quarter: 2022Q4

REPORT INFORMATION
  Report Type: Spontaneous
  Country: CH (occurrence: CH)
  Receive Date: 20211117
  Receipt Date: 20221129
  Transmission Date: 20230113
  Serious: Yes (Hospitalization, Other)
  Sender: FDA-Public Use
  Company Number: None

PATIENT
  Age: 68 Year
  Sex: Female

DRUGS (23)
  1. PREGABALIN [Suspect]
     Active Substance: PREGABALIN
     Indication: Post herpetic neuralgia
     Dosage: 150 MG, 3X/DAY
     Dates: start: 20211015, end: 20211019
  2. PREGABALIN [Suspect]
     Active Substance: PREGABALIN
     Dosage: 200 MG, 3X/DAY
     Dates: start: 20211020
  3. LYRICA [Suspect]
     Active Substance: PREGABALIN
     Indication: Post herpetic neuralgia
     Dosage: 150MG 3X/DAY
     Dates: start: 202110, end: 20211014
  4. PIPERACILLIN SODIUM\TAZOBACTAM SODIUM [Suspect]
     Active Substance: PIPERACILLIN SODIUM\TAZOBACTAM SODIUM
     Dosage: 4.5 G, 3X/DAY (3 DOSES IN TOTAL)
     Dates: start: 20211017, end: 20211018
  5. ACYCLOVIR [Suspect]
     Active Substance: ACYCLOVIR
     Dosage: UNK
     Route: 042
     Dates: start: 20211001, end: 20211014
  6. ACYCLOVIR [Suspect]
     Active Substance: ACYCLOVIR
     Dosage: 700 MG, 3X/DAY
     Dates: start: 20211023, end: 20211025
  7. VALTREX [Suspect]
     Active Substance: VALACYCLOVIR HYDROCHLORIDE
     Dosage: UNK
     Route: 042
     Dates: start: 20210928, end: 20211014
  8. VALTREX [Suspect]
     Active Substance: VALACYCLOVIR HYDROCHLORIDE
     Dosage: 500 MG, DAILY
     Route: 048
     Dates: start: 20211019, end: 20211024
  9. MORPHINE SULFATE [Suspect]
     Active Substance: MORPHINE SULFATE
     Indication: Post herpetic neuralgia
     Dosage: 20 MG, 3X/DAY
     Dates: start: 202110, end: 20211016
  10. MORPHINE SULFATE [Suspect]
     Active Substance: MORPHINE SULFATE
     Dosage: 30 MG, 3X/DAY
     Dates: start: 20211017, end: 20211019
  11. MORPHINE SULFATE [Suspect]
     Active Substance: MORPHINE SULFATE
     Dosage: 40 MG, 3X/DAY
     Dates: start: 20211020
  12. REVLIMID [Suspect]
     Active Substance: LENALIDOMIDE
     Dosage: UNK, 3 WEEKS/MONTH
     Dates: start: 2017, end: 202109
  13. ENOXAPARIN SODIUM [Concomitant]
     Active Substance: ENOXAPARIN SODIUM
     Dosage: 60 MG, 2X/DAY
     Dates: start: 20211015, end: 20211017
  14. APIXABAN [Concomitant]
     Active Substance: APIXABAN
     Dosage: 10 MG, 2X/DAY, EVENING
     Route: 048
     Dates: start: 20211017, end: 20211022
  15. FILGRASTIM [Concomitant]
     Active Substance: FILGRASTIM
     Dosage: UNK
     Dates: start: 20211019
  16. FILGRASTIM [Concomitant]
     Active Substance: FILGRASTIM
     Dosage: UNK
     Dates: start: 20211025
  17. FILGRASTIM [Concomitant]
     Active Substance: FILGRASTIM
     Dosage: UNK
     Dates: start: 20211026
  18. FILGRASTIM [Concomitant]
     Active Substance: FILGRASTIM
     Dosage: UNK
     Dates: start: 20211029
  19. FILGRASTIM [Concomitant]
     Active Substance: FILGRASTIM
     Dosage: UNK
     Dates: start: 20211102
  20. HEPARIN SODIUM [Concomitant]
     Active Substance: HEPARIN SODIUM
     Dosage: UNK
     Dates: start: 20211022
  21. MEROPENEM [Concomitant]
     Active Substance: MEROPENEM
     Dosage: UNK
     Route: 042
     Dates: start: 20211022, end: 20211024
  22. CEFTAZIDIME [Concomitant]
     Active Substance: CEFTAZIDIME
     Dosage: UNK
     Dates: start: 20211024
  23. LENALIDOMIDE [Concomitant]
     Active Substance: LENALIDOMIDE
     Dosage: UNK

REACTIONS (12)
  - Confusional state [Recovered/Resolved]
  - Pyrexia [Unknown]
  - Agranulocytosis [Recovered/Resolved]
  - Leukopenia [Unknown]
  - Neutropenia [Unknown]
  - Cholestasis [Unknown]
  - Immunosuppression [Unknown]
  - Macrophages increased [Unknown]
  - Lung opacity [Unknown]
  - C-reactive protein increased [Unknown]
  - Liver function test abnormal [Unknown]
  - Glomerular filtration rate decreased [Unknown]

NARRATIVE: CASE EVENT DATE: 20211015
